FAERS Safety Report 9266758 (Version 1)
Quarter: 2013Q2

REPORT INFORMATION
  Report Type: Spontaneous
  Country: CY (occurrence: CY)
  Receive Date: 20130502
  Receipt Date: 20130502
  Transmission Date: 20140414
  Serious: Yes (Other)
  Sender: FDA-Public Use
  Company Number: CY-PFIZER INC-2013130967

PATIENT
  Age: 41 Year
  Sex: Male

DRUGS (3)
  1. ZOLOFT [Suspect]
     Dosage: UNK
     Dates: start: 2003
  2. MYOCHOLINE [Suspect]
     Dosage: UNK
     Dates: start: 2012
  3. OMNIC [Suspect]
     Dosage: UNK
     Dates: start: 2012

REACTIONS (2)
  - Dysuria [Unknown]
  - Swelling [Unknown]
